FAERS Safety Report 7733531-7 (Version None)
Quarter: 2011Q3

REPORT INFORMATION
  Report Type: 
  Country: None (occurrence: None)
  Receive Date: 20110907
  Receipt Date: 20110907
  Transmission Date: 20111222
  Serious: Yes (Disabling, Other)
  Sender: FDA-Public Use
  Company Number: None

PATIENT
  Age: 68 Year
  Sex: Female
  Weight: 65.77 kg

DRUGS (1)
  1. CRESTOR [Suspect]
     Indication: BLOOD CHOLESTEROL
     Dosage: L PILL
     Route: 048
     Dates: start: 20110331, end: 20110414

REACTIONS (3)
  - NIGHTMARE [None]
  - MYALGIA [None]
  - PAIN IN EXTREMITY [None]
